FAERS Safety Report 4647712-2 (Version None)
Quarter: 2005Q2

REPORT INFORMATION
  Report Type: 
  Country: None (occurrence: None)
  Receive Date: 20050428
  Receipt Date: 20050419
  Transmission Date: 20051028
  Serious: Yes (Hospitalization)
  Sender: FDA-Public Use
  Company Number: US-BRISTOL-MYERS SQUIBB COMPANY-12939047

PATIENT
  Age: 76 Year
  Sex: Male
  Weight: 78 kg

DRUGS (9)
  1. CARBOPLATIN [Suspect]
     Indication: BLADDER CANCER
     Dosage: DOSE:  AUC=5 ON DAY 1 OF CYCLE
     Route: 042
     Dates: start: 20050406, end: 20050406
  2. PACLITAXEL [Suspect]
     Indication: BLADDER CANCER
     Dosage: REGIMEN:  ON DAY 1 OF CYCLE
     Route: 042
     Dates: start: 20050406, end: 20050406
  3. GEMCITABINE [Suspect]
     Indication: BLADDER CANCER
     Dosage: ON DAYS 1 + 8 OF CYCLE
     Route: 042
     Dates: start: 20050406, end: 20050406
  4. COLACE [Concomitant]
  5. MULTI-VITAMINS [Concomitant]
  6. MEGACE [Concomitant]
  7. FLOMAX [Concomitant]
     Indication: BENIGN PROSTATIC HYPERPLASIA
  8. MS CONTIN [Concomitant]
  9. PERCOCET [Concomitant]

REACTIONS (9)
  - DECREASED APPETITE [None]
  - DIZZINESS [None]
  - DYSPNOEA EXERTIONAL [None]
  - FAECAL INCONTINENCE [None]
  - FATIGUE [None]
  - FLANK PAIN [None]
  - MALAISE [None]
  - URINARY INCONTINENCE [None]
  - URINARY TRACT INFECTION [None]
